FAERS Safety Report 13782710 (Version 6)
Quarter: 2018Q2

REPORT INFORMATION
  Report Type: Report from Study
  Country: CA (occurrence: CA)
  Receive Date: 20170724
  Receipt Date: 20180516
  Transmission Date: 20180711
  Serious: Yes (Hospitalization)
  Sender: FDA-Public Use
  Company Number: CA-ROCHE-1965509

PATIENT
  Age: 71 Year
  Sex: Female
  Weight: 70.5 kg

DRUGS (16)
  1. TYLENOL [Concomitant]
     Active Substance: ACETAMINOPHEN
     Indication: ARTHRALGIA
  2. FRAGMIN [Concomitant]
     Active Substance: DALTEPARIN SODIUM
     Indication: THROMBOSIS PROPHYLAXIS
     Route: 065
     Dates: start: 201703
  3. DEXILANT [Concomitant]
     Active Substance: DEXLANSOPRAZOLE
     Indication: GASTROOESOPHAGEAL REFLUX DISEASE
     Route: 065
     Dates: start: 201703
  4. ALENDRONATE [Concomitant]
     Active Substance: ALENDRONATE SODIUM
     Indication: OSTEOPOROSIS
     Route: 065
     Dates: start: 201601
  5. CALCIUM CARBONATE. [Concomitant]
     Active Substance: CALCIUM CARBONATE
     Indication: OSTEOPOROSIS PROPHYLAXIS
     Route: 065
     Dates: start: 20170421
  6. ATEZOLIZUMAB. [Suspect]
     Active Substance: ATEZOLIZUMAB
     Indication: BREAST CANCER METASTATIC
     Dosage: MOST RECENT (ONCE PER 2 WEEKS): 18/JUL/2017, 840MG
     Route: 042
     Dates: start: 20170424
  7. NAB-PACLITAXEL [Suspect]
     Active Substance: PACLITAXEL
     Indication: BREAST CANCER METASTATIC
     Dosage: MOST RECENT (100 MG/M2, ONCE PER ONCE WEEK): 03/JUL/2017
     Route: 042
     Dates: start: 20170424
  8. HYALURONIC ACID [Concomitant]
     Active Substance: HYALURONIC ACID
     Indication: VOCAL CORD PARALYSIS
     Route: 065
     Dates: start: 20170717, end: 20170717
  9. ZOLPIDEM [Concomitant]
     Active Substance: ZOLPIDEM\ZOLPIDEM TARTRATE
     Indication: INSOMNIA
     Route: 065
     Dates: start: 201703
  10. SYNTHROID [Concomitant]
     Active Substance: LEVOTHYROXINE SODIUM
     Indication: HYPOTHYROIDISM
     Route: 065
     Dates: start: 1972
  11. TYLENOL [Concomitant]
     Active Substance: ACETAMINOPHEN
     Indication: NECK PAIN
     Route: 065
     Dates: start: 20170301
  12. TYLENOL [Concomitant]
     Active Substance: ACETAMINOPHEN
     Indication: FLANK PAIN
  13. PREGABALIN. [Concomitant]
     Active Substance: PREGABALIN
     Indication: NECK PAIN
     Route: 065
     Dates: start: 201703
  14. SYMBICORT [Concomitant]
     Active Substance: BUDESONIDE\FORMOTEROL FUMARATE DIHYDRATE
     Indication: CHRONIC OBSTRUCTIVE PULMONARY DISEASE
     Route: 065
     Dates: start: 2012
  15. IMODIUM [Concomitant]
     Active Substance: LOPERAMIDE HYDROCHLORIDE
     Indication: DIARRHOEA
     Route: 065
     Dates: start: 20170425
  16. ATIVAN [Concomitant]
     Active Substance: LORAZEPAM
     Indication: ANXIETY
     Route: 065
     Dates: start: 20170718, end: 20170719

REACTIONS (1)
  - Stridor [Recovered/Resolved]

NARRATIVE: CASE EVENT DATE: 20170717
